FAERS Safety Report 20495389 (Version 1)
Quarter: 2022Q1

REPORT INFORMATION
  Report Type: Spontaneous
  Country: DE (occurrence: DE)
  Receive Date: 20220221
  Receipt Date: 20220221
  Transmission Date: 20220423
  Serious: Yes (Death, Other)
  Sender: FDA-Public Use
  Company Number: None

PATIENT
  Age: 61 Year
  Sex: Female
  Weight: 55 kg

DRUGS (8)
  1. SERTRALINE HYDROCHLORIDE [Suspect]
     Active Substance: SERTRALINE HYDROCHLORIDE
     Dosage: UNK
     Route: 048
     Dates: start: 20150227, end: 20181026
  2. MIRTAZAPINE [Concomitant]
     Active Substance: MIRTAZAPINE
     Dosage: UNK
     Route: 048
     Dates: start: 20150227, end: 20181026
  3. AMANTADINE SULFATE [Concomitant]
     Active Substance: AMANTADINE SULFATE
     Dosage: UNK
     Route: 048
     Dates: start: 20150227, end: 20181026
  4. CITALOPRAM [Concomitant]
     Active Substance: CITALOPRAM HYDROBROMIDE
     Dosage: UNK
     Route: 048
     Dates: start: 20150227, end: 20181026
  5. BISOPROLOL FUMARATE [Concomitant]
     Active Substance: BISOPROLOL FUMARATE
     Indication: Palpitations
     Dosage: 5 MG
     Route: 048
     Dates: start: 20150227, end: 20181026
  6. BISOPROLOL FUMARATE [Concomitant]
     Active Substance: BISOPROLOL FUMARATE
     Indication: Chest pain
  7. CARBIDOPA [Concomitant]
     Active Substance: CARBIDOPA
     Dosage: UNK
     Route: 048
     Dates: start: 20150227, end: 20181026
  8. LEVODOPA [Concomitant]
     Active Substance: LEVODOPA
     Dosage: UNK
     Route: 048
     Dates: start: 20150227, end: 20181026

REACTIONS (2)
  - Adrenocortical insufficiency acute [Fatal]
  - Syncope [Unknown]

NARRATIVE: CASE EVENT DATE: 20181026
